FAERS Safety Report 7770224-4 (Version None)
Quarter: 2011Q3

REPORT INFORMATION
  Report Type: 
  Country: None (occurrence: None)
  Receive Date: 20110922
  Receipt Date: 20100908
  Transmission Date: 20111222
  Serious: No
  Sender: FDA-Public Use
  Company Number: US-ASTRAZENECA-2010SE42350

PATIENT
  Age: 7567 Day
  Sex: Male
  Weight: 52.2 kg

DRUGS (2)
  1. SEROQUEL XR [Suspect]
     Indication: ATTENTION DEFICIT/HYPERACTIVITY DISORDER
     Route: 048
     Dates: start: 20100101, end: 20100905
  2. SEROQUEL XR [Suspect]
     Indication: BIPOLAR DISORDER
     Route: 048
     Dates: start: 20100101, end: 20100905

REACTIONS (3)
  - DRUG DOSE OMISSION [None]
  - AGGRESSION [None]
  - ACTIVITIES OF DAILY LIVING IMPAIRED [None]
